FAERS Safety Report 23130693 (Version 2)
Quarter: 2024Q2

REPORT INFORMATION
  Report Type: Spontaneous
  Country: IT (occurrence: IT)
  Receive Date: 20231031
  Receipt Date: 20240528
  Transmission Date: 20240716
  Serious: Yes (Other)
  Sender: FDA-Public Use
  Company Number: None

PATIENT
  Age: 74 Year
  Sex: Male
  Weight: 62 kg

DRUGS (14)
  1. ZALTRAP [Suspect]
     Active Substance: ZIV-AFLIBERCEPT
     Indication: Metastases to lung
     Dosage: UNK, 4TH CYCLE/1ST DAY WITH ZALTRAP* 1 VIAL 8ML200MG 25MG/ML; DOSE ADMINISTERED: 260 MG I.V. IN 60 M
     Route: 042
     Dates: start: 20230807, end: 20231016
  2. ZALTRAP [Suspect]
     Active Substance: ZIV-AFLIBERCEPT
     Indication: Adenocarcinoma of colon
     Dosage: 260 MG; 4TH CYCLE/1ST DAY WITH ZALTRAP* 1 VIAL 8ML200MG 25MG/ML; DOSE ADMINISTERED: 260 MG I.V. IN 6
     Route: 042
     Dates: start: 20230807, end: 20231016
  3. METFORMIN HYDROCHLORIDE [Concomitant]
     Active Substance: METFORMIN HYDROCHLORIDE
     Indication: Adverse drug reaction
     Dosage: 1 DF, QD; UNK; CODE RNF 946681 - SLOWMET*60 TABLET 500 MG RP - 1 TABLET PER DAY.
     Route: 048
     Dates: start: 202309
  4. METFORMIN HYDROCHLORIDE [Concomitant]
     Active Substance: METFORMIN HYDROCHLORIDE
     Indication: Hypertension
  5. PANTOPRAZOLE SODIUM [Concomitant]
     Active Substance: PANTOPRAZOLE SODIUM
     Indication: Gastrooesophageal reflux disease
     Dosage: 1 DF, QD
     Route: 048
     Dates: start: 2023
  6. GRANISETRON [Concomitant]
     Active Substance: GRANISETRON
     Indication: Chemotherapy side effect prophylaxis
     Dosage: 3 MG; GRANISETRON (PA) ADMINISTERED 3 MG I.V. PER AFLIBARCEPT PROTOCOL WITH REPEATS EVERY 15 DAYS.
     Route: 042
     Dates: start: 20230807, end: 20231016
  7. GRANISETRON [Concomitant]
     Active Substance: GRANISETRON
     Indication: Vomiting
  8. METOPROLOL TARTRATE [Concomitant]
     Active Substance: METOPROLOL TARTRATE
     Indication: Hypertension
     Dosage: 0.25 DF, QD; COD. RNF 946681 - LOPRESOR* 30TABS RIV 100MG - 1/4 TABS AT 8AM
     Route: 048
     Dates: start: 202309
  9. METOPROLOL TARTRATE [Concomitant]
     Active Substance: METOPROLOL TARTRATE
     Indication: Adverse drug reaction
  10. LASIX [Concomitant]
     Active Substance: FUROSEMIDE
     Indication: Hypertension
     Dosage: 2 DF, QD; LASIX*30 TABLET 25 MG- 1 TABLET 8 A.M. AND 1 TABLET 3 P.M.
     Route: 048
     Dates: start: 2023
  11. CARDURA [Concomitant]
     Active Substance: DOXAZOSIN MESYLATE
     Indication: Adverse drug reaction
     Dosage: 1 DF, QD; CODE RNF 946681 - CARDURA 30 SCORED TABLETS 2MG - 1 TAB 1:00 PM
     Route: 048
     Dates: start: 202309
  12. CARDURA [Concomitant]
     Active Substance: DOXAZOSIN MESYLATE
     Indication: Hypertension
  13. DEXAMETHASONE [Concomitant]
     Active Substance: DEXAMETHASONE
     Indication: Chemotherapy side effect prophylaxis
     Dosage: DESAMETASONE (PA) ADMINISTERED 4 MG I.V. PER AFLIBARCEPT PROTOCOL WITH REPEATS EVERY 15 DAYS.
     Route: 042
     Dates: start: 20230807, end: 20231016
  14. DEXAMETHASONE [Concomitant]
     Active Substance: DEXAMETHASONE
     Indication: Steroid therapy

REACTIONS (7)
  - Ascites [Unknown]
  - Thrombocytopenia [Recovered/Resolved]
  - Dysgeusia [Unknown]
  - Peripheral swelling [Unknown]
  - Abdominal distension [Unknown]
  - Depression [Unknown]
  - Asthenia [Unknown]

NARRATIVE: CASE EVENT DATE: 20231016
